APPROVED DRUG PRODUCT: DILTIAZEM HYDROCHLORIDE
Active Ingredient: DILTIAZEM HYDROCHLORIDE
Strength: 300MG
Dosage Form/Route: CAPSULE, EXTENDED RELEASE;ORAL
Application: A205231 | Product #004 | TE Code: AB3
Applicant: TWI PHARMACEUTICALS INC
Approved: Aug 30, 2018 | RLD: No | RS: No | Type: RX